FAERS Safety Report 4806352-2 (Version None)
Quarter: 2005Q4

REPORT INFORMATION
  Report Type: 
  Country: None (occurrence: None)
  Receive Date: 20051021
  Receipt Date: 20050926
  Transmission Date: 20060501
  Serious: Yes (Other)
  Sender: FDA-Public Use
  Company Number: GR-ROCHE-419179

PATIENT
  Age: 32 Year
  Sex: Female
  Weight: 55 kg

DRUGS (3)
  1. ROACCUTAN [Suspect]
     Indication: ACNE
     Route: 048
     Dates: start: 20050406, end: 20050829
  2. ROACCUTAN [Suspect]
     Route: 048
     Dates: start: 20050829, end: 20050930
  3. ROACCUTAN [Suspect]
     Route: 048
     Dates: start: 20050930

REACTIONS (3)
  - BALANCE DISORDER [None]
  - DIZZINESS [None]
  - FATIGUE [None]
